FAERS Safety Report 17602343 (Version 1)
Quarter: 2020Q1

REPORT INFORMATION
  Report Type: Report from Study
  Country: US (occurrence: US)
  Receive Date: 20200330
  Receipt Date: 20200330
  Transmission Date: 20200409
  Serious: Yes (Hospitalization)
  Sender: FDA-Public Use
  Company Number: US-EXELIXIS-CABO-19026443

PATIENT
  Sex: Female

DRUGS (1)
  1. CABOMETYX [Suspect]
     Active Substance: CABOZANTINIB S-MALATE
     Indication: RENAL CANCER
     Dosage: 40 MG, QD
     Route: 048
     Dates: start: 20191128

REACTIONS (7)
  - Epistaxis [Unknown]
  - Rhinalgia [Unknown]
  - Constipation [Unknown]
  - Skin ulcer [Unknown]
  - Pain [Unknown]
  - Oral pain [Unknown]
  - Taste disorder [Unknown]
